FAERS Safety Report 13592225 (Version 1)
Quarter: 2017Q2

REPORT INFORMATION
  Report Type: Spontaneous
  Country: US (occurrence: US)
  Receive Date: 20170530
  Receipt Date: 20170530
  Transmission Date: 20170830
  Serious: Yes (Hospitalization, Other)
  Sender: FDA-Public Use
  Company Number: US-JNJFOC-20170526340

PATIENT
  Age: 61 Year
  Sex: Female
  Weight: 102.6 kg

DRUGS (2)
  1. XARELTO [Suspect]
     Active Substance: RIVAROXABAN
     Indication: PULMONARY EMBOLISM
     Dosage: 15 MG TWICE A DAY FOR 20 DAYS AND THEN 20 MG ONCE DAILY.
     Route: 048
     Dates: start: 20140607, end: 20141203
  2. LOVENOX [Suspect]
     Active Substance: ENOXAPARIN SODIUM
     Indication: DEEP VEIN THROMBOSIS
     Route: 058
     Dates: end: 201407

REACTIONS (8)
  - Peripheral swelling [Unknown]
  - Hydronephrosis [Unknown]
  - Hypokalaemia [Unknown]
  - Nephrolithiasis [Unknown]
  - Acute kidney injury [Unknown]
  - Hypotension [Unknown]
  - Renal haemorrhage [Unknown]
  - Hypothyroidism [Unknown]

NARRATIVE: CASE EVENT DATE: 20140616
